FAERS Safety Report 9333180 (Version 2)
Quarter: 2013Q3

REPORT INFORMATION
  Report Type: Spontaneous
  Country: US (occurrence: None)
  Receive Date: 20130604
  Receipt Date: 20130709
  Transmission Date: 20140515
  Serious: Yes (Other)
  Sender: FDA-Public Use
  Company Number: DSU-2013-03463

PATIENT
  Age: 68 Year
  Sex: Male
  Weight: 104.33 kg

DRUGS (1)
  1. TRIBENZOR [Suspect]
     Indication: HYPERTENSION
     Dosage: 40/10/25GM (QD), PER ORAL
     Route: 048
     Dates: start: 2008

REACTIONS (12)
  - Dry throat [None]
  - Thirst [None]
  - Asthenia [None]
  - Somnolence [None]
  - Restlessness [None]
  - Confusional state [None]
  - Convulsion [None]
  - Oedema peripheral [None]
  - Dizziness [None]
  - Local swelling [None]
  - Insomnia [None]
  - Loss of consciousness [None]
